FAERS Safety Report 8181267-3 (Version None)
Quarter: 2012Q1

REPORT INFORMATION
  Report Type: 
  Country: None (occurrence: None)
  Receive Date: 20120126
  Receipt Date: 20111003
  Transmission Date: 20120608
  Serious: Yes (Hospitalization)
  Sender: FDA-Public Use
  Company Number: PHEH2011US03702

PATIENT
  Age: 68 Year
  Sex: Male

DRUGS (6)
  1. VITAMINS (ASCORBIC ACID, ERGOCALCIFEROL, NICOTINAMIDE, RETINOL, RIIBOF [Concomitant]
  2. AFINITOR [Suspect]
     Indication: RENAL CELL CARCINOMA
     Dosage: 10 MG , ORAL 5 MG, ORAL, 5 MG, ORAL
     Route: 048
  3. TAMSULOSIN HCL [Concomitant]
  4. CALCIUM CARBONATE [Concomitant]
  5. HYDROCHLOROTHIAZIDE [Concomitant]
  6. LISINOPRIL [Concomitant]

REACTIONS (5)
  - DRUG HYPERSENSITIVITY [None]
  - SWELLING FACE [None]
  - COUGH [None]
  - RETCHING [None]
  - CHOKING [None]
